FAERS Safety Report 7634967-5 (Version None)
Quarter: 2011Q3

REPORT INFORMATION
  Report Type: 
  Country: None (occurrence: None)
  Receive Date: 20110726
  Receipt Date: 20110720
  Transmission Date: 20111222
  Serious: Yes (Other)
  Sender: FDA-Public Use
  Company Number: US-BAYER-2011-063812

PATIENT
  Age: 33 Year
  Sex: Female

DRUGS (2)
  1. YAZ [Suspect]
  2. YASMIN [Suspect]

REACTIONS (2)
  - EMOTIONAL DISTRESS [None]
  - CHOLECYSTECTOMY [None]
